FAERS Safety Report 9103598 (Version 1)
Quarter: 2013Q1

REPORT INFORMATION
  Report Type: Spontaneous
  Country: JP (occurrence: JP)
  Receive Date: 20130219
  Receipt Date: 20130219
  Transmission Date: 20140127
  Serious: Yes (Other)
  Sender: FDA-Public Use
  Company Number: JP-GLAXOSMITHKLINE-B0868036A

PATIENT
  Age: 11 Year
  Sex: Male

DRUGS (3)
  1. RELENZA [Suspect]
     Indication: INFLUENZA
     Dosage: 20MG PER DAY
     Route: 055
     Dates: start: 20130207, end: 20130212
  2. UNKNOWN DRUG [Concomitant]
     Route: 048
     Dates: start: 20130207
  3. ACETAMINOPHEN [Concomitant]
     Route: 048
     Dates: start: 20130207

REACTIONS (3)
  - Stevens-Johnson syndrome [Unknown]
  - Stomatitis [Unknown]
  - Gingival erythema [Unknown]
